FAERS Safety Report 4942966-7 (Version None)
Quarter: 2006Q1

REPORT INFORMATION
  Report Type: 
  Country: None (occurrence: None)
  Receive Date: 20060314
  Receipt Date: 20050103
  Transmission Date: 20060701
  Serious: Yes (Death)
  Sender: FDA-Public Use
  Company Number: US-GLAXOSMITHKLINE-A0539356A

PATIENT
  Age: 54 Year
  Sex: Male

DRUGS (3)
  1. PAXIL [Suspect]
     Indication: DEPRESSION
     Dosage: 30MG PER DAY
     Route: 048
     Dates: start: 20020116
  2. PREVACID [Concomitant]
  3. AMBIEN [Concomitant]

REACTIONS (4)
  - COMPLETED SUICIDE [None]
  - INSOMNIA [None]
  - MOOD ALTERED [None]
  - REFUSAL OF TREATMENT BY PATIENT [None]
